FAERS Safety Report 24209513 (Version 1)
Quarter: 2024Q3

REPORT INFORMATION
  Report Type: Spontaneous
  Country: US (occurrence: US)
  Receive Date: 20240814
  Receipt Date: 20240814
  Transmission Date: 20241017
  Serious: No
  Sender: SANOFI AVENTIS
  Company Number: US-SA-SAC20240812000198

PATIENT
  Age: 66 Year
  Sex: Female
  Weight: 58.967 kg

DRUGS (1)
  1. DUPIXENT [Suspect]
     Active Substance: DUPILUMAB
     Indication: Dermatitis atopic
     Dosage: UNK UNK, 1X
     Route: 058
     Dates: start: 20240726, end: 20240726

REACTIONS (7)
  - Malaise [Unknown]
  - Dyspnoea [Unknown]
  - Abdominal discomfort [Unknown]
  - Contusion [Unknown]
  - Ocular hyperaemia [Unknown]
  - Eye swelling [Unknown]
  - Vision blurred [Unknown]

NARRATIVE: CASE EVENT DATE: 20240101
